FAERS Safety Report 8160739-1 (Version None)
Quarter: 2012Q1

REPORT INFORMATION
  Report Type: 
  Country: None (occurrence: None)
  Receive Date: 20120223
  Receipt Date: 20120213
  Transmission Date: 20120608
  Serious: Yes (Death, Hospitalization, Other)
  Sender: FDA-Public Use
  Company Number: PHHY2011NL103893

PATIENT
  Age: 72 Year
  Sex: Male

DRUGS (2)
  1. PREDNISOLONE [Concomitant]
     Indication: IMMUNOSUPPRESSION
     Dosage: 7.5 MG, UNK
  2. MYCOPHENOLATE MOFETIL (CELLCEPT) [Suspect]
     Indication: RENAL TRANSPLANT
     Dosage: 1000 MG, BID

REACTIONS (13)
  - CSF WHITE BLOOD CELL COUNT POSITIVE [None]
  - BRAIN MASS [None]
  - DYSARTHRIA [None]
  - PNEUMONIA [None]
  - GASTROINTESTINAL HAEMORRHAGE [None]
  - CEREBRAL TOXOPLASMOSIS [None]
  - GASTRIC ULCER [None]
  - COGNITIVE DISORDER [None]
  - NEUROLOGICAL SYMPTOM [None]
  - C-REACTIVE PROTEIN INCREASED [None]
  - EPSTEIN-BARR VIRUS INFECTION [None]
  - HEMIPARESIS [None]
  - FALL [None]
